FAERS Safety Report 19280512 (Version 4)
Quarter: 2021Q3

REPORT INFORMATION
  Report Type: Spontaneous
  Country: GB (occurrence: GB)
  Receive Date: 20210520
  Receipt Date: 20210910
  Transmission Date: 20211014
  Serious: Yes (Other)
  Sender: FDA-Public Use
  Company Number: GB-ALLERGAN-2118736US

PATIENT
  Sex: Female
  Weight: 49 kg

DRUGS (8)
  1. SALBUTAMOL [Suspect]
     Active Substance: ALBUTEROL
     Indication: SPINAL MUSCULAR ATROPHY
     Dosage: 4 MG, QD
     Route: 048
  2. RISDIPLAM. [Suspect]
     Active Substance: RISDIPLAM
     Indication: SPINAL MUSCULAR ATROPHY
     Dosage: 5 MG, QD
     Route: 048
     Dates: start: 20210326
  3. SALBUTAMOL [Suspect]
     Active Substance: ALBUTEROL
     Dosage: 4 MG, TID
     Route: 048
  4. CITALOPRAM HYDROBROMIDE ? BP [Suspect]
     Active Substance: CITALOPRAM HYDROBROMIDE
     Indication: ANXIETY
  5. DOMPERIDONE [Suspect]
     Active Substance: DOMPERIDONE
     Indication: GASTROINTESTINAL MOTILITY DISORDER
     Dosage: 10 MG, QD
     Route: 048
  6. SALBUTAMOL [Suspect]
     Active Substance: ALBUTEROL
     Dosage: 4 MG, BID
     Route: 048
  7. CITALOPRAM HYDROBROMIDE ? BP [Suspect]
     Active Substance: CITALOPRAM HYDROBROMIDE
     Indication: DEPRESSION
     Dosage: 10 MG, QD
     Route: 048
  8. ERYTHROMYCIN. [Concomitant]
     Active Substance: ERYTHROMYCIN
     Indication: PROPHYLAXIS
     Dosage: TWELVE?WEEKLY
     Route: 048

REACTIONS (6)
  - Diarrhoea [Unknown]
  - Vertigo positional [Not Recovered/Not Resolved]
  - Off label use [Unknown]
  - Diarrhoea [Not Recovered/Not Resolved]
  - Chest discomfort [Recovered/Resolved]
  - Tachycardia [Not Recovered/Not Resolved]

NARRATIVE: CASE EVENT DATE: 20210327
